FAERS Safety Report 4840449-6 (Version None)
Quarter: 2005Q4

REPORT INFORMATION
  Report Type: 
  Country: None (occurrence: None)
  Receive Date: 20051128
  Receipt Date: 20051128
  Transmission Date: 20060501
  Serious: Yes (Life-Threatening, Other)
  Sender: FDA-Public Use
  Company Number: None

PATIENT
  Age: 46 Year
  Sex: Female
  Weight: 52.1637 kg

DRUGS (2)
  1. TORADOL [Suspect]
     Indication: BREAKTHROUGH PAIN
     Dosage: 30MG  Q6H  IV
     Route: 042
     Dates: start: 20050723, end: 20050726
  2. TORADOL [Suspect]
     Indication: PROCEDURAL PAIN
     Dosage: 30MG  Q6H  IV
     Route: 042
     Dates: start: 20050723, end: 20050726

REACTIONS (3)
  - ASTHMA [None]
  - HALLUCINATION [None]
  - OXYGEN SATURATION DECREASED [None]
